FAERS Safety Report 13065276 (Version 1)
Quarter: 2016Q4

REPORT INFORMATION
  Report Type: Report from Study
  Country: JP (occurrence: JP)
  Receive Date: 20161227
  Receipt Date: 20161227
  Transmission Date: 20170207
  Serious: Yes (Hospitalization)
  Sender: FDA-Public Use
  Company Number: JP-JNJFOC-20161214479

PATIENT
  Age: 3 Year
  Sex: Male
  Weight: 19.2 kg

DRUGS (29)
  1. SULBACILLIN [Concomitant]
     Active Substance: AMPICILLIN SODIUM\SULBACTAM SODIUM
     Indication: LYMPHADENITIS
     Route: 042
     Dates: start: 20160730, end: 20160730
  2. MEROPENEM. [Concomitant]
     Active Substance: MEROPENEM
     Indication: LYMPHADENITIS
     Route: 041
     Dates: start: 20160731, end: 20160731
  3. ASPIRIN. [Concomitant]
     Active Substance: ASPIRIN
     Indication: KAWASAKI^S DISEASE
     Route: 048
     Dates: end: 20160802
  4. HUMAN NORMAL IMMUNOGLOBULIN [Concomitant]
     Active Substance: HUMAN IMMUNOGLOBULIN G
     Indication: KAWASAKI^S DISEASE
     Route: 042
     Dates: start: 20160731, end: 20160731
  5. MEROPENEM. [Concomitant]
     Active Substance: MEROPENEM
     Indication: LYMPHADENITIS
     Route: 041
     Dates: start: 20160808, end: 20160808
  6. PREDNISONE. [Concomitant]
     Active Substance: PREDNISONE
     Indication: KAWASAKI^S DISEASE
     Route: 048
     Dates: start: 20160811, end: 20160822
  7. MEROPENEM. [Concomitant]
     Active Substance: MEROPENEM
     Indication: LYMPHADENITIS
     Route: 041
     Dates: start: 20160806, end: 20160806
  8. PREDNISONE. [Concomitant]
     Active Substance: PREDNISONE
     Indication: KAWASAKI^S DISEASE
     Route: 048
     Dates: start: 20160826, end: 20160829
  9. REMICADE [Suspect]
     Active Substance: INFLIXIMAB
     Indication: KAWASAKI^S DISEASE
     Route: 042
     Dates: start: 20160730, end: 20160730
  10. SULBACILLIN [Concomitant]
     Active Substance: AMPICILLIN SODIUM\SULBACTAM SODIUM
     Indication: LYMPHADENITIS
     Route: 042
     Dates: start: 20160731, end: 20160731
  11. VANCOMYCIN [Concomitant]
     Active Substance: VANCOMYCIN
     Indication: LYMPHADENITIS
     Route: 041
     Dates: start: 20160731, end: 20160731
  12. MEROPENEM. [Concomitant]
     Active Substance: MEROPENEM
     Indication: LYMPHADENITIS
     Route: 041
     Dates: start: 20160805, end: 20160805
  13. PREDNISONE. [Concomitant]
     Active Substance: PREDNISONE
     Indication: KAWASAKI^S DISEASE
     Route: 048
     Dates: start: 20160802, end: 20160807
  14. HUMAN NORMAL IMMUNOGLOBULIN [Concomitant]
     Active Substance: HUMAN IMMUNOGLOBULIN G
     Indication: KAWASAKI^S DISEASE
     Route: 042
     Dates: start: 20160801, end: 20160801
  15. PREDNISOLONE SODIUM SUCCINATE [Concomitant]
     Active Substance: PREDNISOLONE SODIUM SUCCINATE
     Indication: KAWASAKI^S DISEASE
     Route: 042
     Dates: start: 20160731, end: 20160801
  16. VANCOMYCIN [Concomitant]
     Active Substance: VANCOMYCIN
     Indication: LYMPHADENITIS
     Route: 041
     Dates: start: 20160802, end: 20160802
  17. ASPIRIN. [Concomitant]
     Active Substance: ASPIRIN
     Indication: KAWASAKI^S DISEASE
     Route: 048
     Dates: start: 20160812, end: 20160818
  18. VANCOMYCIN [Concomitant]
     Active Substance: VANCOMYCIN
     Indication: LYMPHADENITIS
     Route: 041
     Dates: start: 20160805, end: 20160805
  19. GASTER [Concomitant]
     Active Substance: FAMOTIDINE
     Indication: PROPHYLAXIS AGAINST GASTROINTESTINAL ULCER
     Route: 048
     Dates: start: 20160803
  20. VANCOMYCIN [Concomitant]
     Active Substance: VANCOMYCIN
     Indication: LYMPHADENITIS
     Route: 041
     Dates: start: 20160804, end: 20160804
  21. VANCOMYCIN [Concomitant]
     Active Substance: VANCOMYCIN
     Indication: LYMPHADENITIS
     Route: 041
     Dates: start: 20160803, end: 20160803
  22. MEROPENEM. [Concomitant]
     Active Substance: MEROPENEM
     Indication: LYMPHADENITIS
     Route: 041
     Dates: start: 20160802, end: 20160802
  23. PREDNISONE. [Concomitant]
     Active Substance: PREDNISONE
     Indication: KAWASAKI^S DISEASE
     Route: 048
     Dates: start: 20160823, end: 20160825
  24. PREDNISONE. [Concomitant]
     Active Substance: PREDNISONE
     Indication: KAWASAKI^S DISEASE
     Route: 048
     Dates: start: 20160830
  25. ASPIRIN. [Concomitant]
     Active Substance: ASPIRIN
     Indication: KAWASAKI^S DISEASE
     Route: 048
     Dates: start: 20160819
  26. ASPIRIN. [Concomitant]
     Active Substance: ASPIRIN
     Indication: KAWASAKI^S DISEASE
     Route: 048
     Dates: start: 20160803, end: 20160811
  27. VANCOMYCIN [Concomitant]
     Active Substance: VANCOMYCIN
     Indication: LYMPHADENITIS
     Route: 041
     Dates: start: 20160801, end: 20160801
  28. MEROPENEM. [Concomitant]
     Active Substance: MEROPENEM
     Indication: LYMPHADENITIS
     Route: 041
     Dates: start: 20160801, end: 20160801
  29. PREDNISONE. [Concomitant]
     Active Substance: PREDNISONE
     Indication: KAWASAKI^S DISEASE
     Route: 048
     Dates: start: 20160808, end: 20160810

REACTIONS (4)
  - Impetigo [Recovered/Resolved]
  - Constipation [Recovering/Resolving]
  - Nasopharyngitis [Recovered/Resolved]
  - Arthritis [Recovered/Resolved]

NARRATIVE: CASE EVENT DATE: 20160802
